FAERS Safety Report 8632464 (Version 4)
Quarter: 2013Q2

REPORT INFORMATION
  Report Type: Spontaneous
  Country: US (occurrence: US)
  Receive Date: 20120625
  Receipt Date: 20130606
  Transmission Date: 20140414
  Serious: Yes (Hospitalization, Other)
  Sender: FDA-Public Use
  Company Number: US-ASTRAZENECA-2012SE40378

PATIENT
  Age: 48 Year
  Sex: Female
  Weight: 47.2 kg

DRUGS (4)
  1. NEXIUM [Suspect]
     Indication: GASTROOESOPHAGEAL REFLUX DISEASE
     Route: 048
  2. NEXIUM [Suspect]
     Indication: ULCER HAEMORRHAGE
     Route: 048
  3. METFORMIN [Concomitant]
  4. LORTAB [Concomitant]
     Indication: PAIN

REACTIONS (6)
  - Ulcer haemorrhage [Unknown]
  - Ulcer [Unknown]
  - Pain [Unknown]
  - Abdominal pain upper [Unknown]
  - Off label use [Unknown]
  - Drug dose omission [Unknown]
